FAERS Safety Report 15424988 (Version 2)
Quarter: 2018Q4

REPORT INFORMATION
  Report Type: Report from Study
  Country: None (occurrence: US)
  Receive Date: 20180925
  Receipt Date: 20181112
  Transmission Date: 20190204
  Serious: Yes (Hospitalization, Other)
  Sender: FDA-Public Use
  Company Number: US-ABBVIE-18K-163-2496946-00

PATIENT
  Sex: Female
  Weight: 88.3 kg

DRUGS (1)
  1. HUMIRA [Suspect]
     Active Substance: ADALIMUMAB
     Indication: PSORIASIS
     Route: 058

REACTIONS (9)
  - Loss of consciousness [Recovered/Resolved]
  - Fluid retention [Recovering/Resolving]
  - End stage renal disease [Not Recovered/Not Resolved]
  - Influenza [Recovered/Resolved]
  - Dialysis related complication [Unknown]
  - Cardiac failure congestive [Not Recovered/Not Resolved]
  - Muscle spasms [Recovered/Resolved]
  - Malaise [Unknown]
  - Asthenia [Recovering/Resolving]

NARRATIVE: CASE EVENT DATE: 2017
